FAERS Safety Report 8418423-2 (Version None)
Quarter: 2012Q2

REPORT INFORMATION
  Report Type: 
  Country: None (occurrence: None)
  Receive Date: 20120607
  Receipt Date: 20120606
  Transmission Date: 20120825
  Serious: Yes (Hospitalization)
  Sender: FDA-Public Use
  Company Number: BR-PFIZER INC-2012135838

PATIENT
  Age: 84 Year
  Sex: Female
  Weight: 55.2 kg

DRUGS (8)
  1. ENOXAPARIN SODIUM [Concomitant]
     Dosage: STRENGTH 40 MG
  2. PANTOPRAZOLE [Concomitant]
     Dosage: STRENGTH 40 MG
  3. VANAIR [Concomitant]
  4. DAXAS [Concomitant]
     Dosage: STRENGTH 40 MG
  5. SPIRIVA [Concomitant]
  6. PIPERACILLIN AND TAZOBACTAM [Suspect]
     Dosage: 4.5 MG, 3X/DAY
     Route: 042
     Dates: start: 20120522
  7. CAPOTEN [Concomitant]
     Dosage: STRENGTH 25 MG
  8. SOLU-MEDROL [Concomitant]
     Dosage: STRENGTH 40 MG

REACTIONS (1)
  - PETECHIAE [None]
